FAERS Safety Report 9312782 (Version 4)
Quarter: 2013Q3

REPORT INFORMATION
  Report Type: Report from Study
  Country: PT (occurrence: PT)
  Receive Date: 20130528
  Receipt Date: 20130805
  Transmission Date: 20140515
  Serious: Yes (Hospitalization)
  Sender: FDA-Public Use
  Company Number: PT-009507513-1305PRT013982

PATIENT
  Age: 39 Year
  Sex: Male
  Weight: 61 kg

DRUGS (19)
  1. BOCEPREVIR [Suspect]
     Indication: HEPATITIS C
     Dosage: 4 DF, UNK
     Route: 048
     Dates: start: 20130328, end: 20130328
  2. BOCEPREVIR [Suspect]
     Dosage: 4 DF, QAM
     Route: 048
     Dates: start: 20130329, end: 20130519
  3. BOCEPREVIR [Suspect]
     Dosage: 4 DF, QAM
     Route: 048
     Dates: start: 20130521, end: 20130522
  4. BOCEPREVIR [Suspect]
     Dosage: 4 DF, QAM
     Route: 048
     Dates: start: 20130525, end: 20130623
  5. BOCEPREVIR [Suspect]
     Dosage: 4 DF, QAM
     Route: 048
     Dates: start: 20130625
  6. BOCEPREVIR [Suspect]
     Dosage: 4 DF, AFTERNOON
     Route: 048
     Dates: start: 20130329, end: 20130517
  7. BOCEPREVIR [Suspect]
     Dosage: 4 DF, AFTERNOON
     Route: 048
     Dates: start: 20130525
  8. BOCEPREVIR [Suspect]
     Dosage: 4 DF, EVENING
     Route: 048
     Dates: start: 20130328, end: 20130518
  9. BOCEPREVIR [Suspect]
     Dosage: 4 DF, EVENING
     Route: 048
     Dates: start: 20130520, end: 20130521
  10. BOCEPREVIR [Suspect]
     Dosage: 4 DF, EVENING
     Route: 048
     Dates: start: 20130525
  11. RIBAVIRIN [Suspect]
     Indication: HEPATITIS C
     Dosage: 2 DF, UNK
     Route: 048
     Dates: start: 20130301, end: 20130301
  12. RIBAVIRIN [Suspect]
     Dosage: 2 DF, QAM
     Route: 048
     Dates: start: 20130302, end: 20130519
  13. RIBAVIRIN [Suspect]
     Dosage: 2 DF, QAM
     Route: 048
     Dates: start: 20130521, end: 20130522
  14. RIBAVIRIN [Suspect]
     Dosage: 2 DF, QAM
     Route: 048
     Dates: start: 20130525
  15. RIBAVIRIN [Suspect]
     Dosage: 3 DF, QPM
     Route: 048
     Dates: start: 20130301, end: 20130518
  16. RIBAVIRIN [Suspect]
     Dosage: 3 DF, QPM
     Route: 048
     Dates: start: 20130520, end: 20130521
  17. RIBAVIRIN [Suspect]
     Dosage: 3 DF, QPM
     Route: 048
     Dates: start: 20130524
  18. PEGINTERFERON ALFA-2A [Suspect]
     Indication: HEPATITIS C
     Dosage: 180 MICROGRAM, QW
     Route: 058
     Dates: start: 20130301
  19. METHADONE HYDROCHLORIDE [Concomitant]
     Indication: DRUG WITHDRAWAL MAINTENANCE THERAPY
     Dosage: 10 MICROGRAM, QD
     Route: 048
     Dates: start: 200712, end: 20130607

REACTIONS (1)
  - Suicidal ideation [Recovered/Resolved]
